FAERS Safety Report 6674444-1 (Version None)
Quarter: 2010Q2

REPORT INFORMATION
  Report Type: 
  Country: None (occurrence: None)
  Receive Date: 20100409
  Receipt Date: 20100330
  Transmission Date: 20101027
  Serious: Yes (Other)
  Sender: FDA-Public Use
  Company Number: PHHY2010JP19895

PATIENT
  Age: 83 Year
  Sex: Female

DRUGS (2)
  1. RASILEZ [Suspect]
     Indication: HYPERTENSION
     Dosage: UNK
     Route: 048
     Dates: end: 20100301
  2. LOSARTAN POTASSIUM AND HYDROCHLOROTHIAZIDE [Concomitant]

REACTIONS (1)
  - RHABDOMYOLYSIS [None]
